FAERS Safety Report 8620404 (Version 3)
Quarter: 2012Q4

REPORT INFORMATION
  Report Type: Spontaneous
  Country: IT (occurrence: None)
  Receive Date: 20120531
  Receipt Date: 20121212
  Transmission Date: 20130627
  Serious: Yes (Hospitalization, Other)
  Sender: FDA-Public Use
  Company Number: ACO_30385_2012

PATIENT
  Age: 38 Year
  Sex: Female

DRUGS (4)
  1. DALFAMPRIDINE [Suspect]
     Indication: MULTIPLE SCLEROSIS
     Route: 048
     Dates: start: 20120410, end: 20120511
  2. DALFAMPRIDINE [Suspect]
     Indication: MULTIPLE SCLEROSIS
     Dates: start: 20120611
  3. METHYLPREDNISOLONE [Concomitant]
  4. ESTROPROGESTINICI (PROGESTERONE) [Concomitant]

REACTIONS (2)
  - CEREBRAL VENOUS THROMBOSIS [None]
  - MULTIPLE SCLEROSIS RELAPSE [None]
